FAERS Safety Report 17917943 (Version 2)
Quarter: 2020Q3

REPORT INFORMATION
  Report Type: Report from Study
  Country: US (occurrence: US)
  Receive Date: 20200619
  Receipt Date: 20200807
  Transmission Date: 20201103
  Serious: Yes (Hospitalization, Other)
  Sender: FDA-Public Use
  Company Number: US-GLAXOSMITHKLINE-US2019TSO173087

PATIENT
  Sex: Female
  Weight: 60 kg

DRUGS (11)
  1. NIRAPARIB [Suspect]
     Active Substance: NIRAPARIB
     Indication: OVARIAN CANCER
     Dosage: 100 MG, QD IN THE EVENING WITH FOOD
     Route: 048
     Dates: start: 20190916
  2. ADVIL [Concomitant]
     Active Substance: IBUPROFEN
     Indication: PRODUCT USED FOR UNKNOWN INDICATION
     Dosage: UNK
  3. NIRAPARIB [Suspect]
     Active Substance: NIRAPARIB
     Dosage: 100 MG, QD
     Route: 048
     Dates: end: 201911
  4. NIRAPARIB [Suspect]
     Active Substance: NIRAPARIB
     Dosage: 100 MG, DAILY
  5. NIRAPARIB [Suspect]
     Active Substance: NIRAPARIB
     Dosage: 100 MG, QD
  6. NIRAPARIB [Suspect]
     Active Substance: NIRAPARIB
     Dosage: 100 MG ONCE DAILY
     Route: 048
  7. NIRAPARIB [Suspect]
     Active Substance: NIRAPARIB
     Dosage: 100 MG, QD
     Route: 048
  8. LOVENOX [Concomitant]
     Active Substance: ENOXAPARIN SODIUM
     Indication: THROMBOSIS
     Dosage: UNK
     Route: 065
  9. NIRAPARIB [Suspect]
     Active Substance: NIRAPARIB
     Dosage: 2 CAPSULES BY MOUTH ONCE DAILY
     Route: 048
  10. NIRAPARIB [Suspect]
     Active Substance: NIRAPARIB
     Dosage: 200 MG, QD
     Route: 048
     Dates: start: 201911
  11. NIRAPARIB [Suspect]
     Active Substance: NIRAPARIB
     Dosage: 100 MG, QD
     Route: 048

REACTIONS (27)
  - Infection [Unknown]
  - Back injury [Not Recovered/Not Resolved]
  - Alopecia [Not Recovered/Not Resolved]
  - Fatigue [Unknown]
  - Underdose [Unknown]
  - Intervertebral disc protrusion [Not Recovered/Not Resolved]
  - Surgery [Unknown]
  - Feeling abnormal [Not Recovered/Not Resolved]
  - Onychomalacia [Not Recovered/Not Resolved]
  - Pain [Unknown]
  - Full blood count decreased [Recovering/Resolving]
  - Asthenia [Unknown]
  - Product dose omission issue [Unknown]
  - Ocular hyperaemia [Unknown]
  - Onychomadesis [Unknown]
  - Pyrexia [Unknown]
  - Herpes zoster [Unknown]
  - Decreased appetite [Unknown]
  - Blood pressure increased [Not Recovered/Not Resolved]
  - Back disorder [Not Recovered/Not Resolved]
  - Somnolence [Unknown]
  - White blood cell count decreased [Unknown]
  - Pneumonia [Unknown]
  - Muscle strain [Unknown]
  - Back pain [Recovered/Resolved]
  - Abdominal pain upper [Recovered/Resolved]
  - Nausea [Unknown]

NARRATIVE: CASE EVENT DATE: 2019
